FAERS Safety Report 13280565 (Version 2)
Quarter: 2017Q2

REPORT INFORMATION
  Report Type: Spontaneous
  Country: FR (occurrence: FR)
  Receive Date: 20170301
  Receipt Date: 20170415
  Transmission Date: 20170830
  Serious: Yes (Death, Other)
  Sender: FDA-Public Use
  Company Number: FR-SUN PHARMACEUTICAL INDUSTRIES LTD-2017R1-134512

PATIENT
  Age: 80 Year
  Sex: Male

DRUGS (2)
  1. CABAZITAXEL [Interacting]
     Active Substance: CABAZITAXEL
     Indication: PRODUCT USED FOR UNKNOWN INDICATION
     Dosage: UNK
     Route: 065
  2. DOCETAXEL. [Suspect]
     Active Substance: DOCETAXEL
     Indication: METASTASES TO BONE
     Dosage: UNK
     Route: 065

REACTIONS (3)
  - Interstitial lung disease [Unknown]
  - Drug cross-reactivity [Unknown]
  - Respiratory failure [Fatal]
